FAERS Safety Report 18432723 (Version 2)
Quarter: 2020Q4

REPORT INFORMATION
  Report Type: Report from Study
  Country: TW (occurrence: TW)
  Receive Date: 20201027
  Receipt Date: 20201122
  Transmission Date: 20210114
  Serious: Yes (Death)
  Sender: FDA-Public Use
  Company Number: NVSC2020TW286528

PATIENT
  Sex: Female

DRUGS (1)
  1. INC280 [Suspect]
     Active Substance: CAPMATINIB
     Indication: LUNG ADENOCARCINOMA
     Dosage: 400 MG, BID (TABLET)
     Route: 048
     Dates: start: 20201001

REACTIONS (1)
  - Lung adenocarcinoma [Fatal]
